FAERS Safety Report 7906142-8 (Version None)
Quarter: 2011Q4

REPORT INFORMATION
  Report Type: 
  Country: None (occurrence: None)
  Receive Date: 20111027
  Receipt Date: 20101027
  Transmission Date: 20120403
  Serious: Yes (Hospitalization, Other)
  Sender: FDA-Public Use
  Company Number: 2010-3054

PATIENT
  Age: 8 Year
  Sex: Male
  Weight: 22 kg

DRUGS (2)
  1. INCRELEX [Suspect]
     Indication: INSULIN-LIKE GROWTH FACTOR DECREASED
     Dosage: 5.6 MG (2.8 MG, 2 IN 1 D) ; 0.26 MG (0.13 MG,2 IN 1 D)
     Dates: start: 20100317, end: 20100418
  2. INCRELEX [Suspect]
     Indication: INSULIN-LIKE GROWTH FACTOR DECREASED
     Dosage: 5.6 MG (2.8 MG, 2 IN 1 D) ; 0.26 MG (0.13 MG,2 IN 1 D)
     Dates: start: 20100615, end: 20100816

REACTIONS (8)
  - BENIGN INTRACRANIAL HYPERTENSION [None]
  - VOMITING [None]
  - PAPILLOEDEMA [None]
  - HEADACHE [None]
  - ASTHENIA [None]
  - HETEROPHORIA [None]
  - REFRACTION DISORDER [None]
  - DYSPNOEA [None]
